FAERS Safety Report 8863093 (Version 3)
Quarter: 2014Q2

REPORT INFORMATION
  Report Type: Report from Study
  Country: GB (occurrence: GB)
  Receive Date: 20121026
  Receipt Date: 20131018
  Transmission Date: 20141212
  Serious: Yes (Hospitalization)
  Sender: FDA-Public Use
  Company Number: GB-PFIZER INC-2011186781

PATIENT
  Age: 59 Year
  Sex: Female

DRUGS (7)
  1. CYTARABINE [Suspect]
     Indication: ACUTE MYELOID LEUKAEMIA
     Dosage: UNK
     Dates: start: 20110629, end: 20110708
  2. CYTARABINE [Suspect]
     Indication: MYELODYSPLASTIC SYNDROME
  3. GEMTUZUMAB OZOGAMICIN [Suspect]
     Indication: ACUTE MYELOID LEUKAEMIA
     Dosage: UNK
     Dates: start: 20110629, end: 20110708
  4. GEMTUZUMAB OZOGAMICIN [Suspect]
     Indication: MYELODYSPLASTIC SYNDROME
  5. DAUNORUBICIN [Suspect]
     Indication: ACUTE MYELOID LEUKAEMIA
     Dosage: UNK
     Dates: start: 20110629, end: 20110708
  6. DAUNORUBICIN [Suspect]
     Indication: MYELODYSPLASTIC SYNDROME
  7. FRUSEMIDE [Suspect]
     Dosage: 20 MG, UNK
     Dates: start: 20110509

REACTIONS (2)
  - Pulmonary embolism [Recovered/Resolved]
  - Thrombosis [Recovered/Resolved]
